FAERS Safety Report 9868940 (Version 3)
Quarter: 2014Q1

REPORT INFORMATION
  Report Type: Report from Study
  Country: CA (occurrence: CA)
  Receive Date: 20140205
  Receipt Date: 20140213
  Transmission Date: 20141002
  Serious: No
  Sender: FDA-Public Use
  Company Number: CA-ROCHE-1266668

PATIENT
  Sex: Female

DRUGS (8)
  1. RITUXAN [Suspect]
     Indication: RHEUMATOID ARTHRITIS
     Route: 042
     Dates: start: 20120802
  2. RITUXAN [Suspect]
     Route: 042
     Dates: start: 20130314
  3. METHYLPREDNISOLONE [Concomitant]
     Indication: PREMEDICATION
     Route: 042
     Dates: start: 20120802
  4. ACETAMINOPHEN [Concomitant]
     Indication: PREMEDICATION
     Route: 048
     Dates: start: 20120802
  5. DIPHENHYDRAMINE HCL [Concomitant]
     Indication: PREMEDICATION
     Route: 048
     Dates: start: 20120802
  6. PROPRANOLOL [Concomitant]
  7. TYLENOL [Concomitant]
     Dosage: AS REQUIRED
     Route: 065
  8. L-THYROXINE [Concomitant]

REACTIONS (2)
  - Rheumatoid arthritis [Unknown]
  - Urticaria [Unknown]
